FAERS Safety Report 20209817 (Version 1)
Quarter: 2021Q4

REPORT INFORMATION
  Report Type: Spontaneous
  Country: CH (occurrence: CH)
  Receive Date: 20211221
  Receipt Date: 20211221
  Transmission Date: 20220303
  Serious: Yes (Other)
  Sender: FDA-Public Use
  Company Number: CH-MTPC-MTDA2021-0031125

PATIENT
  Age: 81 Year
  Sex: Female

DRUGS (2)
  1. RILUZOLE [Suspect]
     Active Substance: RILUZOLE
     Indication: Amyotrophic lateral sclerosis
     Dosage: 50 MILLIGRAM, BID
     Route: 065
  2. COVID-19 VACCINE NOS [Concomitant]
     Active Substance: COVID-19 VACCINE NOS
     Indication: COVID-19 immunisation
     Dosage: UNK
     Route: 065

REACTIONS (14)
  - Interstitial lung disease [Recovering/Resolving]
  - Quadriparesis [Unknown]
  - Respiratory failure [Unknown]
  - Muscle spasticity [Unknown]
  - Weight decreased [Unknown]
  - Grip strength [Unknown]
  - Gait disturbance [Unknown]
  - Muscular weakness [Unknown]
  - Dyspnoea exertional [Recovering/Resolving]
  - Orthopnoea [Unknown]
  - Speech disorder [Unknown]
  - Lung diffusion test decreased [Unknown]
  - Lymphocytosis [Unknown]
  - CD4/CD8 ratio decreased [Unknown]
